FAERS Safety Report 18798567 (Version 3)
Quarter: 2021Q1

REPORT INFORMATION
  Report Type: Spontaneous
  Country: JP (occurrence: JP)
  Receive Date: 20210128
  Receipt Date: 20210317
  Transmission Date: 20210419
  Serious: Yes (Death, Hospitalization, Other)
  Sender: FDA-Public Use
  Company Number: JP-ACCORD-215665

PATIENT
  Age: 76 Year
  Sex: Female
  Weight: 39.6 kg

DRUGS (8)
  1. PACLITAXEL. [Suspect]
     Active Substance: PACLITAXEL
     Indication: PANCREATIC CARCINOMA
     Dosage: THE DRUG DOSAGE WAS REDUCED TO 80% DUE TO THE ADVANCED AGE
     Dates: start: 2019
  2. GLIMEPIRIDE. [Concomitant]
     Active Substance: GLIMEPIRIDE
  3. ALOGLIPTIN/METFORMIN [Concomitant]
     Active Substance: ALOGLIPTIN BENZOATE\METFORMIN HYDROCHLORIDE
     Dosage: 1 TABLET / DAY
  4. INSULIN [Concomitant]
     Active Substance: INSULIN NOS
     Dates: start: 201902
  5. GEMCITABINE/GEMCITABINE HYDROCHLORIDE [Suspect]
     Active Substance: GEMCITABINE\GEMCITABINE HYDROCHLORIDE
     Indication: PANCREATIC CARCINOMA
     Dosage: THE DRUG DOSAGE WAS REDUCED TO 80% DUE TO THE ADVANCED AGE
     Dates: start: 2019
  6. HERBAL EXTRACT NOS [Concomitant]
     Active Substance: HERBALS
     Dosage: 1 PACKET / DAY
  7. METFORMIN [Concomitant]
     Active Substance: METFORMIN HYDROCHLORIDE
  8. PIOGLITAZONE/PIOGLITAZONE HYDROCHLORIDE [Concomitant]
     Active Substance: PIOGLITAZONE HYDROCHLORIDE

REACTIONS (3)
  - IIIrd nerve paralysis [Recovered/Resolved]
  - Ophthalmic herpes zoster [Recovered/Resolved]
  - Neutropenia [Recovered/Resolved]

NARRATIVE: CASE EVENT DATE: 2019
